FAERS Safety Report 18717824 (Version 5)
Quarter: 2021Q2

REPORT INFORMATION
  Report Type: Report from Study
  Country: AU (occurrence: AU)
  Receive Date: 20210108
  Receipt Date: 20210406
  Transmission Date: 20210717
  Serious: Yes (Hospitalization)
  Sender: FDA-Public Use
  Company Number: AU-PFIZER INC-2020518961

PATIENT
  Age: 53 Year
  Sex: Male
  Weight: 142.8 kg

DRUGS (13)
  1. AVELUMAB [Suspect]
     Active Substance: AVELUMAB
     Indication: METASTATIC RENAL CELL CARCINOMA
     Dosage: 10 MG/KG, 2 WEEKLY
     Route: 042
     Dates: start: 20170906
  2. COD LIVER OIL [Concomitant]
     Active Substance: COD LIVER OIL
     Indication: SUPPLEMENTATION THERAPY
     Dosage: UNK
     Dates: start: 20200325
  3. AXITINIB [Suspect]
     Active Substance: AXITINIB
     Indication: METASTATIC RENAL CELL CARCINOMA
     Dosage: 5 MG, BD
     Route: 048
     Dates: start: 20170906, end: 20171230
  4. AXITINIB [Suspect]
     Active Substance: AXITINIB
     Dosage: 1 MG, BD
     Route: 048
     Dates: start: 20201221, end: 20201229
  5. AXITINIB [Suspect]
     Active Substance: AXITINIB
     Dosage: 3 MG, BD
     Route: 048
     Dates: start: 20171231, end: 20201125
  6. CLARATYNE [Concomitant]
     Active Substance: LORATADINE
     Indication: SEASONAL ALLERGY
     Dosage: UNK
     Dates: start: 20200325
  7. THYROXINE [Concomitant]
     Active Substance: LEVOTHYROXINE
     Indication: THYROIDITIS
     Dosage: UNK
     Dates: start: 20200611
  8. PARACETAMOL [Concomitant]
     Active Substance: ACETAMINOPHEN
     Indication: PAIN
     Dosage: UNK
     Dates: start: 20170730
  9. IRBESARTAN. [Concomitant]
     Active Substance: IRBESARTAN
     Indication: HYPERTENSION
     Dosage: UNK
     Dates: start: 20200914
  10. AXITINIB [Suspect]
     Active Substance: AXITINIB
     Dosage: 2 MG, BD
     Route: 048
     Dates: start: 20201126, end: 20201130
  11. CELESTONE [Concomitant]
     Active Substance: BETAMETHASONE
     Indication: RASH
     Dosage: UNK
     Dates: start: 20180815
  12. METAMUCIL [Concomitant]
     Active Substance: PLANTAGO SEED
     Indication: CONSTIPATION
     Dosage: UNK
     Dates: start: 20170730
  13. CLOTRIMAZOLE. [Concomitant]
     Active Substance: CLOTRIMAZOLE
     Indication: RASH
     Dosage: UNK
     Dates: start: 20200306

REACTIONS (1)
  - Haemoptysis [Recovered/Resolved]

NARRATIVE: CASE EVENT DATE: 20201229
